FAERS Safety Report 14453395 (Version 5)
Quarter: 2018Q2

REPORT INFORMATION
  Report Type: Report from Study
  Country: CA (occurrence: CA)
  Receive Date: 20180129
  Receipt Date: 20180509
  Transmission Date: 20180711
  Serious: Yes (Hospitalization, Other)
  Sender: FDA-Public Use
  Company Number: CA-GLAXOSMITHKLINE-CA2018GSK014656

PATIENT
  Age: 60 Year
  Sex: Female

DRUGS (2)
  1. MEPOLIZUMAB [Suspect]
     Active Substance: MEPOLIZUMAB
     Indication: ASTHMA
     Dosage: 100 MG, Z(MONTHLY)
     Route: 042
  2. MEPOLIZUMAB [Suspect]
     Active Substance: MEPOLIZUMAB
     Dosage: 100 MG, Z(MONTHLY)
     Route: 042

REACTIONS (12)
  - Lung infection [Unknown]
  - Influenza [Unknown]
  - Hypotension [Unknown]
  - Dyspnoea [Unknown]
  - Loss of consciousness [Unknown]
  - Generalised oedema [Recovering/Resolving]
  - Renal disorder [Unknown]
  - Oxygen saturation decreased [Unknown]
  - Wheezing [Unknown]
  - Tachypnoea [Unknown]
  - Respiratory disorder [Recovering/Resolving]
  - Oedema [Unknown]

NARRATIVE: CASE EVENT DATE: 20180127
